FAERS Safety Report 9199840 (Version 2)
Quarter: 2014Q2

REPORT INFORMATION
  Report Type: Spontaneous
  Country: US (occurrence: US)
  Receive Date: 20130329
  Receipt Date: 20140410
  Transmission Date: 20141212
  Serious: No
  Sender: FDA-Public Use
  Company Number: US-GALDERMA-US13000774

PATIENT
  Age: 21 Year
  Sex: Female

DRUGS (4)
  1. DIFFERIN (ADAPALENE) LOTION 0.1% [Suspect]
     Indication: ACNE
     Route: 061
     Dates: start: 201006
  2. DIFFERIN (ADAPALENE) LOTION 0.1% [Suspect]
     Route: 061
  3. CETAPHIL DAILY FACIAL MOISTURIZER SPF15 [Concomitant]
     Route: 061
  4. CETAPHIL DAILY FACIAL CLEANSER [Concomitant]
     Route: 061

REACTIONS (4)
  - Skin burning sensation [Recovered/Resolved]
  - Pain of skin [Recovered/Resolved]
  - Erythema [Recovered/Resolved]
  - Dry skin [Recovered/Resolved]
